FAERS Safety Report 5699627-9 (Version None)
Quarter: 2008Q2

REPORT INFORMATION
  Report Type: 
  Country: None (occurrence: None)
  Receive Date: 20080410
  Receipt Date: 20080404
  Transmission Date: 20081010
  Serious: Yes (Hospitalization)
  Sender: FDA-Public Use
  Company Number: PHHY2008NO04596

PATIENT

DRUGS (2)
  1. DIOVAN [Suspect]
  2. ALBYL-E [Concomitant]

REACTIONS (1)
  - ANAL HAEMORRHAGE [None]
